FAERS Safety Report 4994274-6 (Version None)
Quarter: 2006Q1

REPORT INFORMATION
  Report Type: 
  Country: None (occurrence: None)
  Receive Date: 20060314
  Receipt Date: 20050919
  Transmission Date: 20060701
  Serious: Yes (Other)
  Sender: FDA-Public Use
  Company Number: 200512454BCC

PATIENT
  Age: 44 Year
  Sex: Female
  Weight: 87.0906 kg

DRUGS (1)
  1. ALEVE (CAPLET) [Suspect]
     Indication: PAIN
     Dosage: IRR, ORAL
     Route: 048
     Dates: end: 20030101

REACTIONS (3)
  - AUTOIMMUNE DISORDER [None]
  - STOMACH DISCOMFORT [None]
  - ULCER HAEMORRHAGE [None]
